FAERS Safety Report 4953561-8 (Version None)
Quarter: 2006Q1

REPORT INFORMATION
  Report Type: 
  Country: None (occurrence: None)
  Receive Date: 20060324
  Receipt Date: 20051221
  Transmission Date: 20060701
  Serious: Yes (Hospitalization)
  Sender: FDA-Public Use
  Company Number: US-MERCK-0512USA03436

PATIENT
  Age: 54 Year
  Sex: Female
  Weight: 100 kg

DRUGS (13)
  1. VIOXX [Suspect]
     Indication: BACK PAIN
     Route: 048
     Dates: start: 20031203, end: 20040112
  2. DIOVAN [Concomitant]
     Indication: HYPERTENSION
     Route: 065
  3. ASACOL [Concomitant]
     Indication: CROHN'S DISEASE
     Route: 065
  4. ASACOL [Concomitant]
     Indication: DYSPEPSIA
     Route: 065
  5. AVANDIA [Concomitant]
     Indication: DIABETES MELLITUS
     Route: 065
  6. AVANDIA [Concomitant]
     Indication: HEART INJURY
     Route: 065
  7. AMARYL [Concomitant]
     Indication: DIABETES MELLITUS
     Route: 065
  8. AMARYL [Concomitant]
     Indication: HEART INJURY
     Route: 065
  9. METFORMIN HYDROCHLORIDE [Concomitant]
     Indication: DIABETES MELLITUS
     Route: 065
  10. METFORMIN HYDROCHLORIDE [Concomitant]
     Indication: HEART INJURY
     Route: 065
  11. NEXIUM [Concomitant]
     Indication: CROHN'S DISEASE
     Route: 065
  12. NEXIUM [Concomitant]
     Indication: DYSPEPSIA
     Route: 065
  13. ZETIA [Concomitant]
     Route: 048
     Dates: start: 20041220

REACTIONS (4)
  - BACK PAIN [None]
  - INJURY [None]
  - MYOCARDIAL INFARCTION [None]
  - PAIN IN EXTREMITY [None]
